FAERS Safety Report 9988496 (Version 1)
Quarter: 2014Q1

REPORT INFORMATION
  Report Type: Spontaneous
  Country: US (occurrence: US)
  Receive Date: 20140310
  Receipt Date: 20140310
  Transmission Date: 20141002
  Serious: No
  Sender: FDA-Public Use
  Company Number: US-BIOGENIDEC-2014BI017675

PATIENT
  Sex: Female

DRUGS (12)
  1. TECFIDERA [Suspect]
     Indication: MULTIPLE SCLEROSIS
     Route: 048
     Dates: start: 20140208
  2. TECFIDERA [Suspect]
     Indication: MULTIPLE SCLEROSIS
     Route: 048
  3. DETROL [Concomitant]
  4. GABAPENTIN [Concomitant]
  5. WELLBUTRIN [Concomitant]
  6. ADVIL [Concomitant]
  7. CVS FLAXSEED OIL [Concomitant]
  8. CVS GLUCOSAMINE-CHONDR [Concomitant]
  9. CVS BIOTIN [Concomitant]
  10. CVS VITAMIN D3 [Concomitant]
  11. B-COMPLEX VITAMINS PL [Concomitant]
  12. CAL-CITRATE PLUS VITAMIN D [Concomitant]

REACTIONS (1)
  - Nasopharyngitis [Unknown]
